FAERS Safety Report 12598125 (Version 1)
Quarter: 2016Q3

REPORT INFORMATION
  Report Type: Spontaneous
  Country: IT (occurrence: IT)
  Receive Date: 20160726
  Receipt Date: 20160726
  Transmission Date: 20161109
  Serious: Yes (Other)
  Sender: FDA-Public Use
  Company Number: IT-ELI_LILLY_AND_COMPANY-IT201607007663

PATIENT
  Age: 59 Year
  Sex: Male

DRUGS (6)
  1. DELORAZEPAM [Concomitant]
     Active Substance: DELORAZEPAM
     Dosage: 30 DF, UNKNOWN
     Route: 065
  2. TALOFEN [Concomitant]
     Active Substance: PROMAZINE HYDROCHLORIDE
     Dosage: UNK UNK, UNKNOWN
     Route: 065
     Dates: start: 20160717, end: 20160717
  3. AUGMENTIN [Suspect]
     Active Substance: AMOXICILLIN\CLAVULANATE POTASSIUM
     Indication: INFECTION
     Dosage: 1 G, QD
     Route: 048
     Dates: start: 20160712, end: 20160720
  4. ENOXAPARIN [Concomitant]
     Active Substance: ENOXAPARIN
     Dosage: UNK UNK, UNKNOWN
     Route: 065
  5. OLANZAPINE. [Suspect]
     Active Substance: OLANZAPINE
     Indication: BIPOLAR I DISORDER
     Dosage: 10 MG, QD
     Route: 048
     Dates: start: 20160712, end: 20160718
  6. FLURAZEPAM [Concomitant]
     Active Substance: FLURAZEPAM\FLURAZEPAM HYDROCHLORIDE
     Dosage: 1 DF, UNKNOWN
     Route: 065

REACTIONS (1)
  - Electrocardiogram QT prolonged [Not Recovered/Not Resolved]

NARRATIVE: CASE EVENT DATE: 20160718
